FAERS Safety Report 7090645-5 (Version None)
Quarter: 2010Q4

REPORT INFORMATION
  Report Type: 
  Country: None (occurrence: None)
  Receive Date: 20101109
  Receipt Date: 20091109
  Transmission Date: 20110411
  Serious: No
  Sender: FDA-Public Use
  Company Number: US-KINGPHARMUSA00001-K200901412

PATIENT
  Sex: Female

DRUGS (1)
  1. FLECTOR [Suspect]
     Indication: BACK PAIN
     Dosage: UNK, TWICE
     Route: 061

REACTIONS (3)
  - APPLICATION SITE BURN [None]
  - APPLICATION SITE WARMTH [None]
  - DRUG INEFFECTIVE [None]
